FAERS Safety Report 24713665 (Version 1)
Quarter: 2024Q4

REPORT INFORMATION
  Report Type: Spontaneous
  Country: US (occurrence: US)
  Receive Date: 20241209
  Receipt Date: 20241209
  Transmission Date: 20250115
  Serious: No
  Sender: REGENERON
  Company Number: US-REGENERON PHARMACEUTICALS, INC.-2024-047447

PATIENT
  Sex: Male

DRUGS (1)
  1. EYLEA [Suspect]
     Active Substance: AFLIBERCEPT
     Indication: Neovascular age-related macular degeneration
     Dosage: UNK, EVERY 6 WEEKS IN ONE OF EYES (FORMULATION: UNKNOWN)
     Dates: start: 202212

REACTIONS (3)
  - Eye discharge [Unknown]
  - Eye haemorrhage [Recovered/Resolved]
  - Drug effect less than expected [Unknown]
